FAERS Safety Report 5927994-7 (Version None)
Quarter: 2008Q4

REPORT INFORMATION
  Report Type: 
  Country: None (occurrence: None)
  Receive Date: 20081022
  Receipt Date: 20081022
  Transmission Date: 20090506
  Serious: Yes (Hospitalization)
  Sender: FDA-Public Use
  Company Number: None

PATIENT
  Sex: Female
  Weight: 51.1 kg

DRUGS (2)
  1. GEMCITABINE HCL [Suspect]
     Dosage: 618 MG
     Dates: end: 20021230
  2. PACLITAXEL [Suspect]
     Dosage: 330 MG
     Dates: end: 20021230

REACTIONS (2)
  - FEBRILE NEUTROPENIA [None]
  - WHITE BLOOD CELL COUNT DECREASED [None]
